FAERS Safety Report 6088067-9 (Version None)
Quarter: 2009Q1

REPORT INFORMATION
  Report Type: 
  Country: None (occurrence: None)
  Receive Date: 20090218
  Receipt Date: 20090206
  Transmission Date: 20090719
  Serious: Yes (Hospitalization)
  Sender: FDA-Public Use
  Company Number: 2009000235

PATIENT
  Age: 45 Year
  Sex: Female
  Weight: 61.3263 kg

DRUGS (19)
  1. ERLOTINIB       (ERLOTINIB) [Suspect]
     Indication: NON-SMALL CELL LUNG CANCER
     Dosage: (150 MG, QD) ,ORAL; (100 MG, QD) ,ORAL
     Route: 048
     Dates: start: 20081201, end: 20081228
  2. ERLOTINIB       (ERLOTINIB) [Suspect]
     Indication: NON-SMALL CELL LUNG CANCER
     Dosage: (150 MG, QD) ,ORAL; (100 MG, QD) ,ORAL
     Route: 048
     Dates: start: 20081230, end: 20090107
  3. ERLOTINIB       (ERLOTINIB) [Suspect]
     Indication: NON-SMALL CELL LUNG CANCER
     Dosage: (150 MG, QD) ,ORAL; (100 MG, QD) ,ORAL
     Route: 048
     Dates: start: 20090108
  4. SUNITINIB/ PLACEBO [Suspect]
     Indication: NON-SMALL CELL LUNG CANCER
     Dosage: (37.5 MG, QD); (25 MG, QD)
     Dates: start: 20081201, end: 20081228
  5. SUNITINIB/ PLACEBO [Suspect]
     Indication: NON-SMALL CELL LUNG CANCER
     Dosage: (37.5 MG, QD); (25 MG, QD)
     Dates: start: 20081230, end: 20090107
  6. SUNITINIB/ PLACEBO [Suspect]
     Indication: NON-SMALL CELL LUNG CANCER
     Dosage: (37.5 MG, QD); (25 MG, QD)
     Dates: start: 20090108
  7. HUMULIN M (INSULIN HUMAN) [Concomitant]
  8. HUMULIN R [Concomitant]
  9. PERINDOPRIL ERBUMINE [Concomitant]
  10. CETIRIZINE HCL [Concomitant]
  11. CRESTOR [Concomitant]
  12. ASPIRIN [Concomitant]
  13. PAROXETINE HCL [Concomitant]
  14. OMEPRAZOLE [Concomitant]
  15. METOPROLOL TARTRATE [Concomitant]
  16. BETAHISTINE (BETAHISTINE) [Concomitant]
  17. MAGNESIUM GLUCONATE (MAGNESIUM GLUCONATE) [Concomitant]
  18. SODIUM CHLORIDE [Concomitant]
  19. POTASSIUM CHLORIDE [Concomitant]

REACTIONS (7)
  - DIARRHOEA [None]
  - DRUG DOSE OMISSION [None]
  - HYPOCALCAEMIA [None]
  - HYPOMAGNESAEMIA [None]
  - MALAISE [None]
  - NAUSEA [None]
  - VOMITING [None]
